FAERS Safety Report 7801480-1 (Version None)
Quarter: 2011Q4

REPORT INFORMATION
  Report Type: 
  Country: None (occurrence: None)
  Receive Date: 20111006
  Receipt Date: 20111006
  Transmission Date: 20120403
  Serious: Yes (Hospitalization)
  Sender: FDA-Public Use
  Company Number: None

PATIENT
  Age: 87 Year
  Sex: Male
  Weight: 79.5 kg

DRUGS (1)
  1. HEPARIN [Suspect]
     Indication: ATRIAL FIBRILLATION
     Dosage: 1000 UNITS PRN
     Dates: start: 20110720, end: 20110722

REACTIONS (2)
  - HAEMATOMA [None]
  - HAEMOGLOBIN DECREASED [None]
